FAERS Safety Report 8509694-2 (Version None)
Quarter: 2012Q2

REPORT INFORMATION
  Report Type: 
  Country: None (occurrence: None)
  Receive Date: 20120405
  Receipt Date: 20090513
  Transmission Date: 20120825
  Serious: Yes (Other)
  Sender: FDA-Public Use
  Company Number: PHEH2009US04457

PATIENT
  Sex: Female
  Weight: 82.5 kg

DRUGS (6)
  1. RECLAST [Suspect]
     Indication: OSTEOPOROSIS
     Dosage: INFUSION
     Dates: start: 20090420
  2. RECLAST [Suspect]
     Indication: SPINAL FRACTURE
     Dosage: INFUSION
     Dates: start: 20090420
  3. AMLODIPINE [Concomitant]
  4. LISINOPRIL [Concomitant]
  5. CALCIUM W/VITAMIN D NOS (CALCIUM, VITAMIN D NOS) [Concomitant]
  6. LIPITOR [Concomitant]

REACTIONS (2)
  - BLOOD CREATININE INCREASED [None]
  - HYPOCALCAEMIA [None]
